FAERS Safety Report 6216610-5 (Version None)
Quarter: 2009Q2

REPORT INFORMATION
  Report Type: 
  Country: None (occurrence: None)
  Receive Date: 20090605
  Receipt Date: 20090528
  Transmission Date: 20091009
  Serious: Yes (Other)
  Sender: FDA-Public Use
  Company Number: PHBS2006ZA16060

PATIENT
  Sex: Male

DRUGS (1)
  1. GLEEVEC [Suspect]
     Indication: CHRONIC MYELOID LEUKAEMIA
     Dosage: 800 MG, UNK
     Dates: start: 20010301, end: 20030612

REACTIONS (8)
  - ACUTE GRAFT VERSUS HOST DISEASE [None]
  - CLONAL EVOLUTION [None]
  - FACIAL SPASM [None]
  - HIP ARTHROPLASTY [None]
  - LIVER FUNCTION TEST ABNORMAL [None]
  - MALAISE [None]
  - NEUTROPHIL COUNT ABNORMAL [None]
  - OSTEONECROSIS [None]
